FAERS Safety Report 6117673-8 (Version None)
Quarter: 2009Q1

REPORT INFORMATION
  Report Type: 
  Country: None (occurrence: None)
  Receive Date: 20090314
  Receipt Date: 20090126
  Transmission Date: 20090719
  Serious: No
  Sender: FDA-Public Use
  Company Number: US-ABBOTT-09P-163-0500186-00

PATIENT
  Sex: Male
  Weight: 49.032 kg

DRUGS (4)
  1. HUMIRA [Suspect]
     Indication: CROHN'S DISEASE
     Route: 058
     Dates: start: 20080901
  2. HUMIRA [Suspect]
     Route: 058
     Dates: start: 20081020
  3. METRONIDAZOLE [Concomitant]
     Indication: CROHN'S DISEASE
  4. PREDNISONE [Concomitant]
     Indication: NASOPHARYNGITIS

REACTIONS (1)
  - GASTROINTESTINAL FISTULA [None]
